FAERS Safety Report 4269761-9 (Version None)
Quarter: 2004Q1

REPORT INFORMATION
  Report Type: 
  Country: None (occurrence: None)
  Receive Date: 20040113
  Receipt Date: 20030825
  Transmission Date: 20041129
  Serious: Yes (Death, Hospitalization)
  Sender: FDA-Public Use
  Company Number: WAES 0308USA02601

PATIENT
  Age: 27 Year
  Sex: Male

DRUGS (1)
  1. STROMECTOL [Suspect]
     Indication: ONCHOCERCIASIS
     Route: 048
     Dates: start: 20030617, end: 20030617

REACTIONS (6)
  - ASTHENIA [None]
  - CONJUNCTIVAL HAEMORRHAGE [None]
  - LOSS OF CONSCIOUSNESS [None]
  - NUCHAL RIGIDITY [None]
  - PYREXIA [None]
  - SOMNOLENCE [None]
